FAERS Safety Report 8178150-6 (Version None)
Quarter: 2012Q1

REPORT INFORMATION
  Report Type: 
  Country: None (occurrence: None)
  Receive Date: 20120301
  Receipt Date: 20120227
  Transmission Date: 20120608
  Serious: Yes (Death)
  Sender: FDA-Public Use
  Company Number: CHPA2012US003664

PATIENT
  Age: 17 Year
  Sex: Female

DRUGS (18)
  1. IBUPROFEN [Suspect]
     Dosage: UNK, UNK
     Route: 048
  2. GUAIFENESIN [Suspect]
     Dosage: UNK, UNK
     Route: 048
  3. ETHANOL [Suspect]
     Dosage: UNK, UNK
     Route: 048
  4. PSEUDOEPHEDRINE HCL [Suspect]
     Dosage: UNK, UNK
     Route: 048
  5. ROSUVASTATIN [Suspect]
     Dosage: UNK, UNK
     Route: 048
  6. MAGNESIUM [Suspect]
     Dosage: UNK, UNK
     Route: 048
  7. METHYLPHENIDATE [Suspect]
     Dosage: UNK, UNK
     Route: 048
  8. PHENOL [Suspect]
     Dosage: UNK, UNK
     Route: 048
  9. DEXTROMETHORPHAN HYDROBROMIDE [Suspect]
     Dosage: UNK, UNK
     Route: 048
  10. CITALOPRAM HYDROBROMIDE [Suspect]
     Dosage: UNK, UNK
     Route: 048
  11. HYOSCYAMINE [Suspect]
     Dosage: UNK, UNK
     Route: 048
  12. MONTELUKAST [Suspect]
     Dosage: UNK, UNK
     Route: 048
  13. ACETAMINOPHEN AND HYDROCODONE BITARTRATE [Suspect]
     Dosage: UNK, UNK
     Route: 048
  14. FLUOXETINE [Suspect]
     Dosage: UNK, UNK
     Route: 048
  15. LOPERAMIDE HCL [Suspect]
     Dosage: UNK, UNK
     Route: 048
  16. HALOPERIDOL [Suspect]
     Dosage: UNK, UNK
     Route: 048
  17. LAXATIVES [Suspect]
     Dosage: UNK, UNK
     Route: 048
  18. NAPROXEN [Suspect]
     Dosage: UNK, UNK
     Route: 048

REACTIONS (1)
  - COMPLETED SUICIDE [None]
